FAERS Safety Report 7216919-2 (Version None)
Quarter: 2011Q1

REPORT INFORMATION
  Report Type: 
  Country: None (occurrence: None)
  Receive Date: 20110110
  Receipt Date: 20110103
  Transmission Date: 20110831
  Serious: Yes (Hospitalization, Other)
  Sender: FDA-Public Use
  Company Number: US-JNJFOC-20110100969

PATIENT
  Age: 49 Year
  Sex: Male

DRUGS (8)
  1. METHADON [Concomitant]
     Indication: PAIN
  2. ALBUTEROL [Concomitant]
     Route: 055
  3. TOPIRAMATE [Concomitant]
  4. MS CONTIN [Concomitant]
     Indication: PAIN
  5. IPRATROPIUM BROMIDE [Concomitant]
  6. DURAGESIC-50 [Suspect]
     Route: 048
  7. NORTRIPTYLINE [Concomitant]
  8. DURAGESIC-50 [Suspect]
     Indication: PAIN
     Route: 048

REACTIONS (2)
  - PNEUMONIA ASPIRATION [None]
  - INTENTIONAL DRUG MISUSE [None]
